FAERS Safety Report 19907948 (Version 1)
Quarter: 2021Q3

REPORT INFORMATION
  Report Type: Report from Study
  Country: GB (occurrence: GB)
  Receive Date: 20210930
  Receipt Date: 20210930
  Transmission Date: 20211014
  Serious: Yes (Other)
  Sender: FDA-Public Use
  Company Number: NVSC2020GB140964

PATIENT
  Sex: Female

DRUGS (2)
  1. COSENTYX [Suspect]
     Active Substance: SECUKINUMAB
     Indication: PSORIATIC ARTHROPATHY
     Dosage: 300 MG, QMO
     Route: 058
     Dates: start: 2018
  2. COSENTYX [Suspect]
     Active Substance: SECUKINUMAB
     Dosage: 150 MG, (12 MONTHS AGO)
     Route: 065

REACTIONS (4)
  - Renal disorder [Unknown]
  - Underdose [Unknown]
  - Product dose omission issue [Unknown]
  - Kidney infection [Unknown]

NARRATIVE: CASE EVENT DATE: 20200519
